FAERS Safety Report 7053295-2 (Version None)
Quarter: 2010Q4

REPORT INFORMATION
  Report Type: 
  Country: None (occurrence: None)
  Receive Date: 20101020
  Receipt Date: 20101012
  Transmission Date: 20110411
  Serious: Yes (Hospitalization, Other)
  Sender: FDA-Public Use
  Company Number: US-NOVOPROD-310318

PATIENT
  Sex: Male
  Weight: 92.971 kg

DRUGS (3)
  1. VICTOZA [Suspect]
     Indication: TYPE 2 DIABETES MELLITUS
     Dosage: 0.6 MG, QD
     Route: 058
     Dates: start: 20100101, end: 20100101
  2. VICTOZA [Suspect]
     Dosage: 1.2 MG, QD
     Route: 058
     Dates: start: 20100101, end: 20100101
  3. VICTOZA [Suspect]
     Dosage: 1.8 MG, QD
     Route: 058
     Dates: start: 20100101, end: 20100101

REACTIONS (3)
  - HYPERKALAEMIA [None]
  - PANCREATITIS [None]
  - WEIGHT DECREASED [None]
